FAERS Safety Report 5337246-4 (Version None)
Quarter: 2007Q2

REPORT INFORMATION
  Report Type: 
  Country: None (occurrence: None)
  Receive Date: 20070529
  Receipt Date: 20070524
  Transmission Date: 20071010
  Serious: Yes (Other)
  Sender: FDA-Public Use
  Company Number: A0653110A

PATIENT
  Age: 55 Year
  Sex: Female

DRUGS (1)
  1. AVANDAMET [Suspect]
     Dates: end: 20070524

REACTIONS (1)
  - MYOCARDIAL INFARCTION [None]
